FAERS Safety Report 15877689 (Version 1)
Quarter: 2019Q1

REPORT INFORMATION
  Report Type: Spontaneous
  Country: FR (occurrence: FR)
  Receive Date: 20190128
  Receipt Date: 20190128
  Transmission Date: 20190417
  Serious: Yes (Hospitalization)
  Sender: FDA-Public Use
  Company Number: FR-OCTA-FIB00119FR

PATIENT
  Age: 53 Year
  Sex: Male

DRUGS (7)
  1. PROPOFOL. [Suspect]
     Active Substance: PROPOFOL
     Indication: SEDATION
     Route: 051
     Dates: start: 20181128, end: 20181128
  2. ISOFUNDINE, SOLUTION POUR PERFUSION [Concomitant]
     Indication: HYPOTENSION
     Route: 051
     Dates: start: 20181128, end: 20181128
  3. MINIRIN [Suspect]
     Active Substance: DESMOPRESSIN ACETATE
     Indication: SHOCK HAEMORRHAGIC
     Route: 051
     Dates: start: 20181128, end: 20181128
  4. GELOFUSINE [SUCCINYLATED GELATIN] [Suspect]
     Active Substance: SUCCINYLATED GELATIN
     Indication: SHOCK HAEMORRHAGIC
     Route: 051
     Dates: start: 20181128, end: 20181128
  5. EXACYL 0,5 G/5 ML I.V., SOLUTION INJECTABLE [Suspect]
     Active Substance: TRANEXAMIC ACID
     Indication: SHOCK HAEMORRHAGIC
     Route: 042
     Dates: start: 20181128, end: 20181128
  6. CHLORURE DE CALCIUM [Suspect]
     Active Substance: CALCIUM CHLORIDE
     Indication: SHOCK HAEMORRHAGIC
     Route: 042
     Dates: start: 20181128, end: 20181128
  7. FIBRYGA [Suspect]
     Active Substance: FIBRINOGEN HUMAN
     Indication: SHOCK HAEMORRHAGIC
     Route: 042
     Dates: start: 20181128, end: 20181128

REACTIONS (3)
  - Hypotension [Recovered/Resolved]
  - Anaphylactic shock [Recovered/Resolved]
  - Erythema [Recovered/Resolved]

NARRATIVE: CASE EVENT DATE: 20181128
